FAERS Safety Report 7809075 (Version 3)
Quarter: 2022Q1

REPORT INFORMATION
  Report Type: Report from Study
  Country: US (occurrence: None)
  Receive Date: 20110211
  Receipt Date: 20220314
  Transmission Date: 20220423
  Serious: Yes (Death, Life-Threatening, Hospitalization)
  Sender: FDA-Public Use
  Company Number: US-ROCHE-698571

PATIENT
  Age: 80 Year
  Sex: Female

DRUGS (3)
  1. BEVACIZUMAB [Suspect]
     Active Substance: BEVACIZUMAB
     Indication: Ovarian cancer metastatic
     Dosage: DOSE OVER 30 - 90 MIN ON DAY 1?CYCLE: 21 DAYS?LAST DOSE OF BEVACIZUMAB- 10 MAR 2010
     Route: 042
     Dates: start: 20100218
  2. PACLITAXEL [Suspect]
     Active Substance: PACLITAXEL
     Indication: Ovarian cancer metastatic
     Dosage: DOSE GIVEN OVER 3 HOUR ON DAY 1  CYCLE: 21 DAYS
     Route: 042
     Dates: start: 20100218
  3. CARBOPLATIN [Suspect]
     Active Substance: CARBOPLATIN
     Indication: Ovarian cancer metastatic
     Dosage: DOSE: 5 AUC OVER 30 MINUTES ON DAY 1
     Route: 042
     Dates: start: 20100218

REACTIONS (8)
  - Death [Fatal]
  - Colitis [Recovered/Resolved]
  - Hypertension [Unknown]
  - Epistaxis [Recovered/Resolved]
  - Platelet count decreased [Recovered/Resolved]
  - Large intestinal haemorrhage [Unknown]
  - Hypokalaemia [Recovered/Resolved]
  - Pneumonitis [Not Recovered/Not Resolved]

NARRATIVE: CASE EVENT DATE: 20100321
